FAERS Safety Report 15377462 (Version 2)
Quarter: 2018Q3

REPORT INFORMATION
  Report Type: Spontaneous
  Country: PT (occurrence: PT)
  Receive Date: 20180913
  Receipt Date: 20180926
  Transmission Date: 20181010
  Serious: Yes (Hospitalization, Other)
  Sender: FDA-Public Use
  Company Number: PT-SA-2018SA247764

PATIENT
  Age: 62 Year
  Sex: Male

DRUGS (14)
  1. PREDNISONE. [Suspect]
     Active Substance: PREDNISONE
     Indication: RENAL TRANSPLANT
     Dosage: UNK, UNKNOWN FREQ.
     Route: 065
  2. ISONIAZID. [Suspect]
     Active Substance: ISONIAZID
     Indication: TUBERCULOSIS OF GENITOURINARY SYSTEM
     Dosage: UNK UNK, UNKNOWN FREQ.
     Route: 065
  3. ETHAMBUTOL [Suspect]
     Active Substance: ETHAMBUTOL HYDROCHLORIDE
     Indication: BONE TUBERCULOSIS
  4. PYRAZINAMIDE. [Suspect]
     Active Substance: PYRAZINAMIDE
     Indication: BONE TUBERCULOSIS
  5. PREDNISONE. [Suspect]
     Active Substance: PREDNISONE
     Indication: IMMUNOSUPPRESSANT DRUG THERAPY
  6. MYCOPHENOLATE MOFETIL. [Suspect]
     Active Substance: MYCOPHENOLATE MOFETIL
     Indication: RENAL TRANSPLANT
     Dosage: UNK UNK, UNKNOWN FREQ.
     Route: 065
  7. PYRAZINAMIDE. [Suspect]
     Active Substance: PYRAZINAMIDE
     Indication: TUBERCULOSIS OF GENITOURINARY SYSTEM
     Dosage: UNK, UNKNOWN FREQ.
     Route: 065
  8. MYCOPHENOLATE MOFETIL. [Suspect]
     Active Substance: MYCOPHENOLATE MOFETIL
     Indication: IMMUNOSUPPRESSANT DRUG THERAPY
  9. ISONIAZID. [Suspect]
     Active Substance: ISONIAZID
     Indication: BONE TUBERCULOSIS
  10. RIFAMPICIN [Interacting]
     Active Substance: RIFAMPIN
     Indication: BONE TUBERCULOSIS
  11. TACROLIMUS. [Interacting]
     Active Substance: TACROLIMUS
     Indication: RENAL TRANSPLANT
     Dosage: UNK UNK, UNKNOWN FREQ.
     Route: 065
  12. RIFAMPICIN [Suspect]
     Active Substance: RIFAMPIN
     Indication: TUBERCULOSIS OF GENITOURINARY SYSTEM
     Dosage: UNK UNK, UNKNOWN FREQ.
     Route: 065
  13. ETHAMBUTOL [Suspect]
     Active Substance: ETHAMBUTOL HYDROCHLORIDE
     Indication: TUBERCULOSIS OF GENITOURINARY SYSTEM
     Dosage: UNK UNK, UNKNOWN FREQ.
     Route: 065
  14. TACROLIMUS. [Interacting]
     Active Substance: TACROLIMUS
     Indication: IMMUNOSUPPRESSANT DRUG THERAPY

REACTIONS (15)
  - Dysuria [Recovered/Resolved]
  - Pollakiuria [Recovered/Resolved]
  - Pyrexia [Not Recovered/Not Resolved]
  - Epididymal tenderness [Unknown]
  - Bone tuberculosis [Recovering/Resolving]
  - Urinary incontinence [Recovered/Resolved]
  - Mass [Unknown]
  - Tuberculosis of genitourinary system [Recovering/Resolving]
  - Drug interaction [Unknown]
  - Fatigue [Unknown]
  - Lymphadenopathy [Unknown]
  - Back pain [Recovering/Resolving]
  - Prostatic abscess [Recovering/Resolving]
  - Muscular weakness [Recovering/Resolving]
  - Hepatitis toxic [Recovered/Resolved]
